FAERS Safety Report 7962930-3 (Version None)
Quarter: 2011Q4

REPORT INFORMATION
  Report Type: 
  Country: None (occurrence: None)
  Receive Date: 20111207
  Receipt Date: 20111129
  Transmission Date: 20120403
  Serious: Yes (Disabling, Other)
  Sender: FDA-Public Use
  Company Number: JP-CELGENEUS-087-21880-11040018

PATIENT
  Sex: Male

DRUGS (19)
  1. VELCADE [Suspect]
     Indication: MULTIPLE MYELOMA
     Dosage: 1.6 MILLIGRAM
     Route: 041
     Dates: start: 20110201, end: 20110204
  2. LANSOPRAZOLE [Concomitant]
     Indication: PROPHYLAXIS
     Dosage: 15 MILLIGRAM
     Route: 048
     Dates: start: 20110201, end: 20110224
  3. LEVOFLOXACIN [Concomitant]
     Indication: PYREXIA
     Route: 065
     Dates: start: 20110217, end: 20110224
  4. DEXAMETHASONE [Concomitant]
     Dosage: 20 MILLIGRAM
     Route: 041
     Dates: start: 20110208, end: 20110209
  5. ASPIRIN [Concomitant]
     Indication: PROPHYLAXIS
     Dosage: 100 MILLIGRAM
     Route: 048
     Dates: start: 20110201, end: 20110224
  6. SULFAMETHOXAZOLE AND TRIMETHOPRIM [Concomitant]
     Indication: PROPHYLAXIS
     Dosage: 1 TABLET
     Route: 048
     Dates: start: 20110201, end: 20110224
  7. PURSENNID [Concomitant]
     Indication: CONSTIPATION
     Dosage: 24 MILLIGRAM
     Route: 048
     Dates: start: 20110201, end: 20110224
  8. DEXAMETHASONE [Concomitant]
     Dosage: 20 MILLIGRAM
     Route: 041
     Dates: start: 20110211, end: 20110212
  9. ZOVIRAX [Concomitant]
     Indication: PROPHYLAXIS
     Dosage: 200 MILLIGRAM
     Route: 048
     Dates: start: 20110201, end: 20110224
  10. PRAVASTATIN SODIUM [Concomitant]
     Indication: HYPERLIPIDAEMIA
     Dosage: 5 MILLIGRAM
     Route: 048
     Dates: start: 20110201, end: 20110224
  11. DEXAMETHASONE [Concomitant]
     Indication: MULTIPLE MYELOMA
     Dosage: 20 MILLIGRAM
     Route: 041
     Dates: start: 20110201, end: 20110202
  12. DEXAMETHASONE [Concomitant]
     Dosage: 20 MILLIGRAM
     Route: 041
     Dates: start: 20110204, end: 20110205
  13. MAGMITT [Concomitant]
     Indication: CONSTIPATION
     Dosage: 1.5 GRAM
     Route: 048
     Dates: start: 20110201, end: 20110224
  14. OXYCONTIN [Concomitant]
     Indication: MULTIPLE MYELOMA
     Dosage: 20 MILLIGRAM
     Route: 048
     Dates: start: 20110201, end: 20110224
  15. DIOVAN [Concomitant]
     Indication: HYPERTENSION
     Dosage: 40 MILLIGRAM
     Route: 048
     Dates: start: 20110201, end: 20110224
  16. REVLIMID [Suspect]
     Indication: MULTIPLE MYELOMA
     Dosage: 15 MILLIGRAM
     Route: 048
     Dates: start: 20110201, end: 20110214
  17. VELCADE [Suspect]
     Dosage: 1.6 MILLIGRAM
     Route: 041
     Dates: start: 20110208, end: 20110211
  18. ZOVIRAX [Concomitant]
     Indication: ANGINA PECTORIS
     Dosage: 75 MILLIGRAM
     Route: 048
     Dates: start: 20110201, end: 20110224
  19. LYRICA [Concomitant]
     Indication: MULTIPLE MYELOMA
     Dosage: 150 MILLIGRAM
     Route: 048
     Dates: start: 20110201, end: 20110224

REACTIONS (4)
  - ESCHERICHIA BACTERAEMIA [None]
  - THROMBOCYTOPENIA [None]
  - ANAEMIA [None]
  - HEPATIC FUNCTION ABNORMAL [None]
